FAERS Safety Report 5694448-5 (Version None)
Quarter: 2008Q2

REPORT INFORMATION
  Report Type: 
  Country: None (occurrence: None)
  Receive Date: 20080404
  Receipt Date: 20080401
  Transmission Date: 20081010
  Serious: Yes (Life-Threatening)
  Sender: FDA-Public Use
  Company Number: FR-JNJFOC-20080400533

PATIENT
  Sex: Male

DRUGS (7)
  1. REOPRO [Suspect]
     Route: 042
  2. REOPRO [Suspect]
     Indication: CARDIOVASCULAR EVENT PROPHYLAXIS
     Route: 042
  3. PLAVIX [Concomitant]
  4. SELOKEN [Concomitant]
  5. KARDEGIC [Concomitant]
  6. TRIATEC [Concomitant]
  7. ELISOR [Concomitant]

REACTIONS (4)
  - CHEST PAIN [None]
  - CORONARY ARTERY STENOSIS [None]
  - MYOCARDIAL INFARCTION [None]
  - THROMBOCYTOPENIA [None]
